FAERS Safety Report 8343247-4 (Version None)
Quarter: 2012Q2

REPORT INFORMATION
  Report Type: 
  Country: None (occurrence: None)
  Receive Date: 20120508
  Receipt Date: 20120430
  Transmission Date: 20120825
  Serious: Yes (Disabling, Other)
  Sender: FDA-Public Use
  Company Number: US-BAYER-2012-042101

PATIENT
  Age: 30 Year
  Sex: Female

DRUGS (1)
  1. MIRENA [Suspect]
     Indication: CONTRACEPTION
     Dosage: 20 MCG/24HR, CONT
     Route: 015
     Dates: start: 20100201, end: 20110201

REACTIONS (5)
  - DEVICE DISLOCATION [None]
  - DYSPAREUNIA [None]
  - VAGINAL ODOUR [None]
  - INFERTILITY FEMALE [None]
  - ABDOMINAL PAIN LOWER [None]
